FAERS Safety Report 14367712 (Version 1)
Quarter: 2018Q1

REPORT INFORMATION
  Report Type: Spontaneous
  Country: US (occurrence: US)
  Receive Date: 20180108
  Receipt Date: 20180108
  Transmission Date: 20180509
  Serious: No
  Sender: FDA-Public Use
  Company Number: None

PATIENT
  Age: 57 Year
  Sex: Male

DRUGS (1)
  1. DESCOVY [Suspect]
     Active Substance: EMTRICITABINE\TENOFOVIR ALAFENAMIDE FUMARATE
     Indication: HIV INFECTION
     Route: 048
     Dates: start: 20171212, end: 20180105

REACTIONS (4)
  - Fat tissue increased [None]
  - Swelling [None]
  - Nervous system disorder [None]
  - Adverse drug reaction [None]

NARRATIVE: CASE EVENT DATE: 20180105
